FAERS Safety Report 15387873 (Version 2)
Quarter: 2019Q3

REPORT INFORMATION
  Report Type: Report from Study
  Country: None (occurrence: AR)
  Receive Date: 20180914
  Receipt Date: 20190907
  Transmission Date: 20191004
  Serious: Yes (Other)
  Sender: FDA-Public Use
  Company Number: AR-ABBVIE-18K-007-2463225-00

PATIENT
  Age: 57 Year
  Sex: Male

DRUGS (4)
  1. LOTRIAL [Concomitant]
     Active Substance: ENALAPRIL MALEATE
     Indication: BLOOD PRESSURE MEASUREMENT
     Dosage: 1 PER DAY OR 2 WHEN HIGH BLOOD PRESSURE
  2. HUMIRA [Suspect]
     Active Substance: ADALIMUMAB
     Route: 058
     Dates: end: 201907
  3. HUMIRA [Suspect]
     Active Substance: ADALIMUMAB
     Indication: PSORIATIC ARTHROPATHY
     Route: 058
     Dates: end: 201808
  4. HUMIRA [Suspect]
     Active Substance: ADALIMUMAB
     Indication: PSORIATIC ARTHROPATHY
     Route: 058
     Dates: start: 20161201

REACTIONS (8)
  - Psoriatic arthropathy [Unknown]
  - Osteoarthritis [Unknown]
  - Meniscus injury [Recovering/Resolving]
  - Ligament sprain [Recovering/Resolving]
  - Psoriasis [Recovered/Resolved]
  - Pain [Unknown]
  - Meniscus injury [Unknown]
  - Fall [Unknown]

NARRATIVE: CASE EVENT DATE: 201808
